FAERS Safety Report 6354449-0 (Version None)
Quarter: 2009Q3

REPORT INFORMATION
  Report Type: 
  Country: None (occurrence: None)
  Receive Date: 20090909
  Receipt Date: 20090829
  Transmission Date: 20100115
  Serious: Yes (Other)
  Sender: FDA-Public Use
  Company Number: STI-2009-02334

PATIENT
  Sex: Female

DRUGS (2)
  1. SARNA ORIGINAL LOTION (UNSPECIFIED) (CAMPHOR + MENTHOL) (CAMPHOR W/MEN [Suspect]
     Indication: PRURITUS
     Dosage: 1-2 TIMES DAILY; 3 DOSES OVER 4 DAYS, TOPICAL
     Route: 061
     Dates: start: 20090826, end: 20090829
  2. SARNA ORIGINAL LOTION (UNSPECIFIED) (CAMPHOR + MENTHOL) (CAMPHOR W/MEN [Suspect]
     Indication: RASH ERYTHEMATOUS
     Dosage: 1-2 TIMES DAILY; 3 DOSES OVER 4 DAYS, TOPICAL
     Route: 061
     Dates: start: 20090826, end: 20090829

REACTIONS (6)
  - DRY MOUTH [None]
  - DRY THROAT [None]
  - HYPERSENSITIVITY [None]
  - MUSCULAR WEAKNESS [None]
  - PRESYNCOPE [None]
  - SPEECH DISORDER [None]
